FAERS Safety Report 10230282 (Version 1)
Quarter: 2014Q2

REPORT INFORMATION
  Report Type: Spontaneous
  Country: US (occurrence: None)
  Receive Date: 20140610
  Receipt Date: 20140610
  Transmission Date: 20141212
  Serious: No
  Sender: FDA-Public Use
  Company Number: None

PATIENT
  Sex: Female
  Weight: 49.9 kg

DRUGS (1)
  1. ZARONTIN [Suspect]
     Indication: EPILEPSY
     Dosage: 5 ML AM - 10 ML PM; BY MOUTH

REACTIONS (4)
  - Convulsion [None]
  - Irritability [None]
  - Condition aggravated [None]
  - Product substitution issue [None]
